FAERS Safety Report 23392647 (Version 1)
Quarter: 2024Q1

REPORT INFORMATION
  Report Type: Spontaneous
  Country: US (occurrence: US)
  Receive Date: 20240111
  Receipt Date: 20240111
  Transmission Date: 20240410
  Serious: No
  Sender: FDA-Public Use
  Company Number: US-SA-SAC20240110000999

PATIENT
  Age: 84 Year
  Sex: Male

DRUGS (3)
  1. DUPIXENT [Suspect]
     Active Substance: DUPILUMAB
     Indication: Dermatitis atopic
     Dosage: 300 MG, QOW
     Route: 058
     Dates: start: 202311
  2. FINASTERIDE [Suspect]
     Active Substance: FINASTERIDE
     Indication: Micturition urgency
     Dosage: UNK
     Dates: start: 202311, end: 2023
  3. FINASTERIDE [Suspect]
     Active Substance: FINASTERIDE
     Indication: Urinary incontinence

REACTIONS (6)
  - Micturition urgency [Unknown]
  - Urinary incontinence [Unknown]
  - Neck pain [Recovering/Resolving]
  - Musculoskeletal stiffness [Recovering/Resolving]
  - Condition aggravated [Unknown]
  - Therapeutic response shortened [Unknown]

NARRATIVE: CASE EVENT DATE: 20230101
